FAERS Safety Report 19740705 (Version 1)
Quarter: 2021Q3

REPORT INFORMATION
  Report Type: Report from Study
  Country: US (occurrence: US)
  Receive Date: 20210824
  Receipt Date: 20210824
  Transmission Date: 20211014
  Serious: Yes (Hospitalization)
  Sender: FDA-Public Use
  Company Number: US-JNJFOC-20210828981

PATIENT
  Age: 40 Year
  Sex: Female

DRUGS (2)
  1. SPRAVATO [Suspect]
     Active Substance: ESKETAMINE
     Indication: DEPRESSION
     Dates: start: 20210125, end: 20210125
  2. SPRAVATO [Suspect]
     Active Substance: ESKETAMINE
     Dosage: 20 TOTAL DOSES
     Dates: start: 20210127, end: 20210817

REACTIONS (1)
  - Electrolyte imbalance [Unknown]
